FAERS Safety Report 5422203-X (Version None)
Quarter: 2007Q3

REPORT INFORMATION
  Report Type: 
  Country: None (occurrence: None)
  Receive Date: 20070821
  Receipt Date: 20070821
  Transmission Date: 20080115
  Serious: Yes (Hospitalization)
  Sender: FDA-Public Use
  Company Number: None

PATIENT
  Age: 71 Year
  Sex: Male
  Weight: 66 kg

DRUGS (2)
  1. INVANZ [Suspect]
     Indication: ANTIBIOTIC PROPHYLAXIS
     Dosage: 1 GRAM Q24HR IV BOLUS
     Route: 040
     Dates: start: 20070814, end: 20070816
  2. THEOPHYLLINE [Suspect]
     Dosage: 100 MG Q8HR PO
     Route: 048
     Dates: start: 20070815, end: 20070816

REACTIONS (2)
  - CONVULSION [None]
  - UNRESPONSIVE TO STIMULI [None]
